FAERS Safety Report 7314083-2 (Version None)
Quarter: 2011Q1

REPORT INFORMATION
  Report Type: 
  Country: None (occurrence: None)
  Receive Date: 20110225
  Receipt Date: 20100427
  Transmission Date: 20110831
  Serious: Yes (Other)
  Sender: FDA-Public Use
  Company Number: US-MYLANLABS-2010S1007415

PATIENT
  Sex: Male

DRUGS (3)
  1. AMNESTEEM [Suspect]
     Indication: ACNE
     Dates: start: 20040601, end: 20041001
  2. ACCUTANE [Suspect]
     Indication: ACNE
     Route: 048
     Dates: start: 20040101, end: 20040601
  3. AMNESTEEM [Suspect]
     Dates: start: 20041201, end: 20050401

REACTIONS (1)
  - INFLAMMATORY BOWEL DISEASE [None]
